FAERS Safety Report 11734259 (Version 1)
Quarter: 2015Q4

REPORT INFORMATION
  Report Type: Spontaneous
  Country: US (occurrence: US)
  Receive Date: 20151113
  Receipt Date: 20151113
  Transmission Date: 20160304
  Serious: Yes (Life-Threatening)
  Sender: FDA-Public Use
  Company Number: US-GUERBET LLC-1044151

PATIENT
  Age: 60 Year
  Sex: Female

DRUGS (2)
  1. OXILAN [Suspect]
     Active Substance: IOXILAN
     Dates: start: 20070712, end: 20070712
  2. FENTANYL. [Concomitant]
     Active Substance: FENTANYL

REACTIONS (3)
  - Atrial fibrillation [Recovered/Resolved]
  - Chest pain [Recovered/Resolved]
  - Visual impairment [Recovered/Resolved]

NARRATIVE: CASE EVENT DATE: 20070712
